FAERS Safety Report 4297463-1 (Version None)
Quarter: 2004Q1

REPORT INFORMATION
  Report Type: 
  Country: None (occurrence: None)
  Receive Date: 20040213
  Receipt Date: 20031031
  Transmission Date: 20041129
  Serious: Yes (Other)
  Sender: FDA-Public Use
  Company Number: PHEH2003US07946

PATIENT
  Age: 70 Year
  Sex: Male

DRUGS (6)
  1. DIOVAN [Suspect]
     Indication: HYPERTENSION
     Dosage: 80 MG, QD, ORAL
     Route: 048
     Dates: end: 20030801
  2. DIOVAN [Suspect]
     Dosage: 160 MG, QD, ORAL
     Route: 048
  3. DIOVAN [Suspect]
     Dosage: 320 MG, QD, ORAL
     Route: 048
     Dates: end: 20030801
  4. PRAVACHOL [Concomitant]
  5. ASPIRIN [Concomitant]
  6. HYDROCHLOROTHIAZIDE [Concomitant]

REACTIONS (1)
  - BLOOD PRESSURE INCREASED [None]
